FAERS Safety Report 6299905-9 (Version None)
Quarter: 2009Q3

REPORT INFORMATION
  Report Type: 
  Country: None (occurrence: None)
  Receive Date: 20090806
  Receipt Date: 20090730
  Transmission Date: 20100115
  Serious: Yes (Death, Hospitalization, Other)
  Sender: FDA-Public Use
  Company Number: PHHY2008JP20212

PATIENT
  Sex: Male

DRUGS (11)
  1. ICL670A ICL+DISTAB [Suspect]
     Indication: MYELODYSPLASTIC SYNDROME
     Dosage: 500 MG, DAILY
     Route: 048
     Dates: start: 20080723, end: 20080812
  2. ICL670A ICL+DISTAB [Suspect]
     Dosage: 500 MG DAILY
     Route: 048
     Dates: start: 20080903
  3. CRAVIT [Suspect]
     Dosage: 2 DF DAILY
     Route: 048
     Dates: start: 20080701, end: 20080812
  4. URSO 250 [Suspect]
     Dosage: 600 MG, UNK
     Route: 048
     Dates: start: 20060906
  5. MECOBALAMIN [Concomitant]
     Dosage: 180 MG, UNK
     Route: 048
  6. ZANTAC [Concomitant]
     Dosage: 150 MG, UNK
     Route: 048
  7. PURSENNID [Concomitant]
     Dosage: 2 DF, UNK
     Route: 048
  8. CYANOCOBALAMIN [Concomitant]
     Dosage: 1500 UG, UNK
     Route: 048
     Dates: end: 20090224
  9. BUP-4 [Concomitant]
     Dosage: 10 MG, UNK
     Route: 048
     Dates: start: 20081203, end: 20090224
  10. PREDONINE [Concomitant]
     Dosage: 30 MG, UNK
     Route: 048
     Dates: start: 20081201, end: 20090224
  11. ONEALFA [Concomitant]
     Dosage: 0.5 UG, UNK
     Route: 048
     Dates: start: 20081201, end: 20090224

REACTIONS (11)
  - ALANINE AMINOTRANSFERASE INCREASED [None]
  - ASPARTATE AMINOTRANSFERASE INCREASED [None]
  - BLOOD LACTATE DEHYDROGENASE INCREASED [None]
  - BLOOD UREA INCREASED [None]
  - CONDITION AGGRAVATED [None]
  - HAEMOCHROMATOSIS [None]
  - INFECTION [None]
  - INTERSTITIAL LUNG DISEASE [None]
  - LYMPHOCYTE COUNT DECREASED [None]
  - URTICARIA [None]
  - WHITE BLOOD CELL COUNT INCREASED [None]
